FAERS Safety Report 17899599 (Version 2)
Quarter: 2020Q3

REPORT INFORMATION
  Report Type: Spontaneous
  Country: US (occurrence: US)
  Receive Date: 20200616
  Receipt Date: 20200916
  Transmission Date: 20201103
  Serious: Yes (Hospitalization, Other)
  Sender: FDA-Public Use
  Company Number: US-ABBVIE-20K-163-3442244-00

PATIENT
  Age: 84 Year
  Sex: Male
  Weight: 77.18 kg

DRUGS (1)
  1. HUMIRA [Suspect]
     Active Substance: ADALIMUMAB
     Indication: COLITIS ULCERATIVE
     Route: 058
     Dates: start: 20180723, end: 20200731

REACTIONS (3)
  - Cardiac pacemaker insertion [Unknown]
  - Device issue [Recovered/Resolved]
  - Dementia with Lewy bodies [Recovering/Resolving]

NARRATIVE: CASE EVENT DATE: 2018
